FAERS Safety Report 16306263 (Version 1)
Quarter: 2019Q2

REPORT INFORMATION
  Report Type: Spontaneous
  Country: NZ (occurrence: NZ)
  Receive Date: 20190513
  Receipt Date: 20190513
  Transmission Date: 20190711
  Serious: Yes (Other)
  Sender: FDA-Public Use
  Company Number: NZ-ELI_LILLY_AND_COMPANY-NZ201904014335

PATIENT

DRUGS (1)
  1. OLANZAPINE PAMOATE 210MG [Suspect]
     Active Substance: OLANZAPINE PAMOATE
     Indication: PRODUCT USED FOR UNKNOWN INDICATION
     Dosage: 210 MG, UNKNOWN
     Route: 030

REACTIONS (7)
  - Post-injection delirium sedation syndrome [Unknown]
  - Gait disturbance [Unknown]
  - Kyphosis [Unknown]
  - Dysarthria [Unknown]
  - Urinary incontinence [Unknown]
  - Gait inability [Unknown]
  - Abnormal behaviour [Unknown]

NARRATIVE: CASE EVENT DATE: 20190424
